FAERS Safety Report 6282469-3 (Version None)
Quarter: 2009Q3

REPORT INFORMATION
  Report Type: 
  Country: None (occurrence: None)
  Receive Date: 20090724
  Receipt Date: 20090723
  Transmission Date: 20100115
  Serious: Yes (Life-Threatening, Hospitalization)
  Sender: FDA-Public Use
  Company Number: FR-JNJFOC-20090704845

PATIENT
  Age: 43 Year
  Sex: Male

DRUGS (7)
  1. HALDOL [Suspect]
     Indication: SCHIZOPHRENIA
     Route: 048
  2. ZYPREXA [Suspect]
     Indication: SCHIZOPHRENIA
     Route: 048
  3. HYPNOVEL [Interacting]
     Indication: SEDATION
     Route: 042
  4. TEMESTA [Interacting]
     Indication: MENTAL DISORDER
     Route: 048
  5. SUBUTEX [Concomitant]
     Route: 060
  6. SUBUTEX [Concomitant]
     Indication: DRUG DEPENDENCE
     Route: 060
  7. CHLORAMINOPHENE [Concomitant]
     Route: 065

REACTIONS (5)
  - ACUTE RESPIRATORY FAILURE [None]
  - BRONCHIAL OBSTRUCTION [None]
  - CEREBRAL THROMBOSIS [None]
  - DRUG INTERACTION [None]
  - ISCHAEMIC STROKE [None]
